FAERS Safety Report 19375361 (Version 1)
Quarter: 2021Q2

REPORT INFORMATION
  Report Type: Spontaneous
  Country: CN (occurrence: CN)
  Receive Date: 20210604
  Receipt Date: 20210604
  Transmission Date: 20210717
  Serious: Yes (Other)
  Sender: FDA-Public Use
  Company Number: CN-PFIZER INC-2021585966

PATIENT
  Age: 90 Year
  Sex: Female
  Weight: 60 kg

DRUGS (1)
  1. ZYVOX [Suspect]
     Active Substance: LINEZOLID
     Indication: PNEUMONIA
     Dosage: 600 MG, 2X/DAY

REACTIONS (2)
  - Creatinine renal clearance decreased [Unknown]
  - Transaminases increased [Unknown]
